FAERS Safety Report 9613550 (Version 2)
Quarter: 2013Q4

REPORT INFORMATION
  Report Type: Spontaneous
  Country: IT (occurrence: None)
  Receive Date: 20131008
  Receipt Date: 20131119
  Transmission Date: 20140711
  Serious: Yes (Other)
  Sender: FDA-Public Use
  Company Number: AUR-APL-2013-08150

PATIENT
  Age: 8 Year
  Sex: Female

DRUGS (2)
  1. AMOXICLLIN+CLAVULANIC ACID (CLAVULANIC ACID, AMOXICILLIN) [Suspect]
     Indication: COUGH
     Dosage: TOTAL
     Route: 048
     Dates: start: 20130905, end: 20130905
  2. LISOMUCIL (CARBOCISTEINE) [Suspect]
     Indication: COUGH
     Dosage: TOTAL
     Route: 048
     Dates: start: 20130905, end: 20130905

REACTIONS (2)
  - Periorbital oedema [None]
  - Urticaria [None]
